FAERS Safety Report 5232221-2 (Version None)
Quarter: 2007Q1

REPORT INFORMATION
  Report Type: 
  Country: None (occurrence: None)
  Receive Date: 20070207
  Receipt Date: 20070129
  Transmission Date: 20070707
  Serious: Yes (Other)
  Sender: FDA-Public Use
  Company Number: PHNU2006DE03330

PATIENT
  Sex: Female

DRUGS (2)
  1. ZOMETA [Suspect]
     Indication: OSTEOPOROSIS
     Dosage: 4 MG, UNK
     Dates: start: 20060601
  2. AREDIA [Suspect]
     Indication: OSTEOPOROSIS
     Dosage: 30 MG, UNK
     Route: 042
     Dates: start: 19930101, end: 20060501

REACTIONS (3)
  - FALL [None]
  - PELVIC FRACTURE [None]
  - PELVIC PAIN [None]
